FAERS Safety Report 10636416 (Version 1)
Quarter: 2014Q4

REPORT INFORMATION
  Report Type: Spontaneous
  Country: US (occurrence: US)
  Receive Date: 20141207
  Receipt Date: 20141207
  Transmission Date: 20150529
  Serious: No
  Sender: FDA-Public Use
  Company Number: US-GLAXOSMITHKLINE-A1078116A

PATIENT

DRUGS (1)
  1. HYCAMTIN [Suspect]
     Active Substance: TOPOTECAN HYDROCHLORIDE
     Indication: METASTASES TO LUNG
     Dosage: 4 MG DAILY ON DAYS 1-5 EVERY 21 DAYS
     Route: 065
     Dates: start: 20140327

REACTIONS (2)
  - Hypersomnia [Unknown]
  - Decreased appetite [Unknown]
